FAERS Safety Report 8052137-6 (Version None)
Quarter: 2012Q1

REPORT INFORMATION
  Report Type: 
  Country: None (occurrence: None)
  Receive Date: 20120118
  Receipt Date: 20120113
  Transmission Date: 20120608
  Serious: No
  Sender: FDA-Public Use
  Company Number: US-PFIZER INC-2012010979

PATIENT
  Sex: Female

DRUGS (3)
  1. COPAXONE [Concomitant]
     Dosage: UNK
  2. NEURONTIN [Suspect]
     Indication: MULTIPLE SCLEROSIS
     Dosage: 300 MG, 3X/DAY
     Route: 048
     Dates: start: 20110101
  3. BACLOFEN [Concomitant]
     Dosage: UNK

REACTIONS (1)
  - OEDEMA PERIPHERAL [None]
